FAERS Safety Report 24525980 (Version 1)
Quarter: 2024Q4

REPORT INFORMATION
  Report Type: Spontaneous
  Country: IT (occurrence: IT)
  Receive Date: 20241020
  Receipt Date: 20241020
  Transmission Date: 20250115
  Serious: Yes (Hospitalization)
  Sender: AMGEN
  Company Number: IT-AMGEN-ITASP2024203912

PATIENT
  Age: 9 Year
  Sex: Male

DRUGS (4)
  1. ECULIZUMAB [Suspect]
     Active Substance: ECULIZUMAB
     Indication: Atypical haemolytic uraemic syndrome
     Dosage: 600 MILLIGRAM
     Route: 065
  2. ECULIZUMAB [Suspect]
     Active Substance: ECULIZUMAB
     Dosage: 300 MILLIGRAM, QD
     Route: 065
  3. ECULIZUMAB [Suspect]
     Active Substance: ECULIZUMAB
     Dosage: UNK UNK, QWK
     Route: 065
  4. ECULIZUMAB [Suspect]
     Active Substance: ECULIZUMAB
     Dosage: UNK UNK, Q2WK
     Route: 065

REACTIONS (3)
  - Posterior reversible encephalopathy syndrome [Unknown]
  - Chronic kidney disease [Unknown]
  - Atypical haemolytic uraemic syndrome [Unknown]
